FAERS Safety Report 16787925 (Version 1)
Quarter: 2019Q3

REPORT INFORMATION
  Report Type: Spontaneous
  Country: CN (occurrence: CN)
  Receive Date: 20190909
  Receipt Date: 20190909
  Transmission Date: 20191005
  Serious: Yes (Hospitalization)
  Sender: FDA-Public Use
  Company Number: PHHY2019CN209653

PATIENT
  Age: 24 Year
  Sex: Male
  Weight: 64 kg

DRUGS (5)
  1. CARBAMAZEPINE. [Suspect]
     Active Substance: CARBAMAZEPINE
     Indication: GENERALISED TONIC-CLONIC SEIZURE
     Dosage: 0.2 G, BID
     Route: 048
  2. PHENYTOIN SODIUM. [Interacting]
     Active Substance: PHENYTOIN SODIUM
     Indication: GENERALISED TONIC-CLONIC SEIZURE
     Dosage: 0.2 G, BID
     Route: 048
  3. VALPROATE SODIUM. [Interacting]
     Active Substance: VALPROATE SODIUM
     Dosage: 750 MG, BID
     Route: 048
  4. SODIUM CHLORIDE. [Concomitant]
     Active Substance: SODIUM CHLORIDE
     Indication: PRODUCT USED FOR UNKNOWN INDICATION
     Dosage: 500 ML, UNK
     Route: 065
  5. VALPROATE SODIUM. [Interacting]
     Active Substance: VALPROATE SODIUM
     Indication: GENERALISED TONIC-CLONIC SEIZURE
     Dosage: 500 MG, BID
     Route: 048

REACTIONS (9)
  - Gait disturbance [Recovered/Resolved]
  - Generalised tonic-clonic seizure [Recovered/Resolved]
  - Nausea [Recovering/Resolving]
  - Drug interaction [Unknown]
  - Muscle fatigue [Recovering/Resolving]
  - Vomiting [Recovering/Resolving]
  - Diplopia [Recovered/Resolved]
  - Dizziness [Recovering/Resolving]
  - Fall [Recovering/Resolving]
